FAERS Safety Report 10944905 (Version 1)
Quarter: 2015Q1

REPORT INFORMATION
  Report Type: Spontaneous
  Country: AU (occurrence: None)
  Receive Date: 20150318
  Receipt Date: 20150318
  Transmission Date: 20150721
  Serious: Yes (Hospitalization)
  Sender: FDA-Public Use
  Company Number: AU-ZYDUS-006978

PATIENT
  Age: 57 Year
  Sex: Male

DRUGS (3)
  1. CLOPIDOGREL [Suspect]
     Active Substance: CLOPIDOGREL BISULFATE
     Indication: ANTIPLATELET THERAPY
  2. PRASUGREL (PRASUGREL) [Suspect]
     Active Substance: PRASUGREL
  3. TICAGRELOR (TICAGRELOR) [Suspect]
     Active Substance: TICAGRELOR

REACTIONS (3)
  - Drug hypersensitivity [None]
  - Chest pain [None]
  - Dysphagia [None]
